FAERS Safety Report 10906953 (Version 1)
Quarter: 2015Q1

REPORT INFORMATION
  Report Type: Spontaneous
  Country: None (occurrence: None)
  Receive Date: 20150309
  Receipt Date: 20150309
  Transmission Date: 20150721
  Serious: Yes (Disabling)
  Sender: FDA-Public Use
  Company Number: None

PATIENT
  Age: 57 Year
  Sex: Female
  Weight: 94.35 kg

DRUGS (9)
  1. ANASTROZOLE. [Concomitant]
     Active Substance: ANASTROZOLE
  2. CPAP [Concomitant]
     Active Substance: DEVICE
  3. FLAXSEED [Concomitant]
     Active Substance: FLAX SEED
  4. ZADITOR [Concomitant]
     Active Substance: KETOTIFEN FUMARATE
  5. CALCIUM [Concomitant]
     Active Substance: CALCIUM
  6. ANASTROZOLE 1 MG [Suspect]
     Active Substance: ANASTROZOLE
     Indication: BREAST CANCER
     Dosage: 1 PILL
     Route: 048
     Dates: start: 20140510, end: 20150306
  7. QVAR [Concomitant]
     Active Substance: BECLOMETHASONE DIPROPIONATE
  8. VITAMIN D [Concomitant]
     Active Substance: CHOLECALCIFEROL
  9. DAILY VITAMIN [Concomitant]
     Active Substance: VITAMINS

REACTIONS (7)
  - Abdominal distension [None]
  - Eructation [None]
  - Abdominal pain [None]
  - Diarrhoea [None]
  - Impaired work ability [None]
  - Abdominal discomfort [None]
  - Quality of life decreased [None]

NARRATIVE: CASE EVENT DATE: 20150202
